FAERS Safety Report 4661505-1 (Version None)
Quarter: 2005Q2

REPORT INFORMATION
  Report Type: 
  Country: None (occurrence: None)
  Receive Date: 20050502
  Receipt Date: 20041214
  Transmission Date: 20051028
  Serious: No
  Sender: FDA-Public Use
  Company Number: 200419610US

PATIENT
  Sex: Female

DRUGS (1)
  1. KETEK [Suspect]
     Indication: SINUSITIS

REACTIONS (1)
  - FEELING JITTERY [None]
